FAERS Safety Report 5789098-6 (Version None)
Quarter: 2008Q2

REPORT INFORMATION
  Report Type: 
  Country: None (occurrence: None)
  Receive Date: 20080626
  Receipt Date: 20080620
  Transmission Date: 20081010
  Serious: Yes (Other)
  Sender: FDA-Public Use
  Company Number: BR-BAYER-200815238LA

PATIENT
  Age: 47 Year
  Sex: Female
  Weight: 85 kg

DRUGS (5)
  1. ADALAT [Suspect]
     Indication: HYPERTENSION
     Route: 048
     Dates: start: 20080618, end: 20080618
  2. MIFLASONA [Concomitant]
     Indication: ASTHMA
     Route: 055
     Dates: start: 20070101
  3. FLUOXETINA [Concomitant]
     Indication: ANTIDEPRESSANT THERAPY
     Route: 048
     Dates: start: 20070301
  4. BEROTEC [Concomitant]
     Indication: ASTHMATIC CRISIS
     Route: 055
     Dates: start: 20020101
  5. ATROVENT [Concomitant]
     Indication: ASTHMATIC CRISIS
     Route: 055
     Dates: start: 20020101

REACTIONS (10)
  - ABNORMAL SENSATION IN EYE [None]
  - DIZZINESS [None]
  - ERYTHEMA [None]
  - HEADACHE [None]
  - HYPOAESTHESIA ORAL [None]
  - NAUSEA [None]
  - OCULAR HYPERAEMIA [None]
  - OEDEMA PERIPHERAL [None]
  - SWELLING FACE [None]
  - TREMOR [None]
